FAERS Safety Report 16953686 (Version 2)
Quarter: 2019Q4

REPORT INFORMATION
  Report Type: Spontaneous
  Country: DE (occurrence: DE)
  Receive Date: 20191023
  Receipt Date: 20191028
  Transmission Date: 20200122
  Serious: Yes (Other)
  Sender: FDA-Public Use
  Company Number: DE-SA-2019SA291461

PATIENT
  Sex: Female

DRUGS (1)
  1. DUPIXENT [Suspect]
     Active Substance: DUPILUMAB
     Dosage: UNK UNK, UNK
     Route: 065

REACTIONS (2)
  - Eye haemorrhage [Unknown]
  - Arthralgia [Unknown]

NARRATIVE: CASE EVENT DATE: 201910
